FAERS Safety Report 16135381 (Version 2)
Quarter: 2021Q2

REPORT INFORMATION
  Report Type: Spontaneous
  Country: US (occurrence: US)
  Receive Date: 20190329
  Receipt Date: 20210601
  Transmission Date: 20210716
  Serious: No
  Sender: FDA-Public Use
  Company Number: US-SA-2019SA085404

PATIENT
  Age: 83 Year
  Sex: Male

DRUGS (1)
  1. TOUJEO [Suspect]
     Active Substance: INSULIN GLARGINE
     Indication: TYPE 2 DIABETES MELLITUS
     Dosage: 21 IU, QD
     Route: 065

REACTIONS (3)
  - Hypoacusis [Unknown]
  - Device issue [Unknown]
  - Product dose omission issue [Unknown]
